FAERS Safety Report 17300478 (Version 1)
Quarter: 2020Q1

REPORT INFORMATION
  Report Type: Spontaneous
  Country: US (occurrence: US)
  Receive Date: 20200122
  Receipt Date: 20200122
  Transmission Date: 20200409
  Serious: No
  Sender: FDA-Public Use
  Company Number: US-ALLERGAN-1940997US

PATIENT
  Sex: Female

DRUGS (8)
  1. CALCIUM PLUS D3 [Concomitant]
  2. OMEGA XL [Concomitant]
     Active Substance: DIETARY SUPPLEMENT
  3. ROSUVASTATIN. [Concomitant]
     Active Substance: ROSUVASTATIN
  4. NAPROXEN. [Concomitant]
     Active Substance: NAPROXEN
     Indication: PAIN
  5. METFORMIN [Concomitant]
     Active Substance: METFORMIN HYDROCHLORIDE
  6. RESTASIS [Suspect]
     Active Substance: CYCLOSPORINE
     Indication: DRY EYE
  7. SYNTHROID [Concomitant]
     Active Substance: LEVOTHYROXINE SODIUM
  8. PIOGLITAZONE. [Concomitant]
     Active Substance: PIOGLITAZONE

REACTIONS (1)
  - Eye irritation [Recovered/Resolved]
